FAERS Safety Report 8733181 (Version 2)
Quarter: 2013Q4

REPORT INFORMATION
  Report Type: Spontaneous
  Country: CA (occurrence: CA)
  Receive Date: 20120821
  Receipt Date: 20131119
  Transmission Date: 20140711
  Serious: Yes (Death, Hospitalization, Other)
  Sender: FDA-Public Use
  Company Number: CA-AMGEN-CANSP2012051372

PATIENT
  Age: 89 Year
  Sex: Male

DRUGS (2)
  1. ARANESP [Suspect]
     Indication: NEPHROGENIC ANAEMIA
     Dosage: 500 MUG, UNK
     Route: 058
     Dates: start: 201102
  2. EPREX [Suspect]
     Indication: PRODUCT USED FOR UNKNOWN INDICATION
     Dosage: 60000 IU, QWK
     Route: 065

REACTIONS (6)
  - Haemoglobin decreased [Fatal]
  - Drug ineffective [Fatal]
  - Fracture [Unknown]
  - Plasma cell myeloma [Unknown]
  - Anaemia [Not Recovered/Not Resolved]
  - Aplasia pure red cell [Unknown]
